FAERS Safety Report 9243182 (Version 1)
Quarter: 2013Q2

REPORT INFORMATION
  Report Type: Spontaneous
  Country: BR (occurrence: BR)
  Receive Date: 20130419
  Receipt Date: 20130419
  Transmission Date: 20140414
  Serious: Yes (Other)
  Sender: FDA-Public Use
  Company Number: BR-PFIZER INC-2013118909

PATIENT
  Age: 69 Year
  Sex: Female

DRUGS (3)
  1. XALATAN [Suspect]
     Indication: GLAUCOMA
     Dosage: UNK, ONCE A DAY
     Route: 047
     Dates: start: 2009, end: 2011
  2. AZORGA [Concomitant]
     Indication: GLAUCOMA
     Dosage: UNK
     Dates: start: 2009
  3. ALPHAGAN [Concomitant]
     Indication: GLAUCOMA
     Dosage: UNK
     Dates: start: 2012

REACTIONS (3)
  - Drug ineffective [Unknown]
  - Cataract [Unknown]
  - Cataract [Unknown]
